FAERS Safety Report 20964288 (Version 2)
Quarter: 2022Q3

REPORT INFORMATION
  Report Type: Spontaneous
  Country: BR (occurrence: BR)
  Receive Date: 20220615
  Receipt Date: 20220708
  Transmission Date: 20221026
  Serious: Yes (Other)
  Sender: FDA-Public Use
  Company Number: BR-BAXTER-2022BAX011078

PATIENT
  Age: 39 Year
  Sex: Female

DRUGS (3)
  1. IRON [Suspect]
     Active Substance: IRON
     Indication: Anaemia
     Dosage: UNK, 2 AMPOULES VIA ENDOVENOUS ROUTE
     Route: 042
     Dates: start: 20220503, end: 202205
  2. IRON [Suspect]
     Active Substance: IRON
     Dosage: UNK
     Route: 042
     Dates: start: 20220517
  3. SODIUM CHLORIDE [Suspect]
     Active Substance: SODIUM CHLORIDE
     Indication: Medication dilution
     Dosage: 200 ML, VIA ENDOVENOUS ROUTE
     Route: 042
     Dates: start: 20220503

REACTIONS (3)
  - Malaise [Recovered/Resolved]
  - Syncope [Recovered/Resolved]
  - Asthenia [Recovered/Resolved]

NARRATIVE: CASE EVENT DATE: 20220503
